FAERS Safety Report 17050418 (Version 1)
Quarter: 2019Q4

REPORT INFORMATION
  Report Type: Spontaneous
  Country: US (occurrence: US)
  Receive Date: 20191119
  Receipt Date: 20191119
  Transmission Date: 20200122
  Serious: Yes (Hospitalization)
  Sender: FDA-Public Use
  Company Number: US-TEVA-2019-US-1138580

PATIENT
  Age: 36 Year
  Sex: Male

DRUGS (1)
  1. HALOPERIDOL. [Suspect]
     Active Substance: HALOPERIDOL
     Route: 065

REACTIONS (8)
  - Neuroleptic malignant syndrome [Recovering/Resolving]
  - Cardiomyopathy [Recovering/Resolving]
  - Paranoia [Recovering/Resolving]
  - Autonomic nervous system imbalance [Recovering/Resolving]
  - Mental status changes [Recovering/Resolving]
  - Rhabdomyolysis [Recovering/Resolving]
  - Hyporesponsive to stimuli [Recovering/Resolving]
  - Agitation [Recovering/Resolving]
